FAERS Safety Report 8456550-4 (Version None)
Quarter: 2012Q2

REPORT INFORMATION
  Report Type: 
  Country: None (occurrence: None)
  Receive Date: 20120621
  Receipt Date: 20120619
  Transmission Date: 20120825
  Serious: Yes (Hospitalization, Disabling)
  Sender: FDA-Public Use
  Company Number: US-MERCK-1203USA03356

PATIENT
  Age: 59 Year
  Sex: Female

DRUGS (4)
  1. CALTRATE + D [Concomitant]
     Route: 065
  2. ALENDRONATE SODIUM [Suspect]
     Indication: OSTEOPOROSIS
     Route: 048
     Dates: start: 20040401, end: 20110401
  3. VITAMIN D (UNSPECIFIED) [Concomitant]
     Route: 065
  4. FOSAMAX [Suspect]
     Indication: OSTEOPOROSIS
     Route: 048
     Dates: start: 20030617, end: 20110901

REACTIONS (28)
  - PINGUECULA [None]
  - VITAMIN D DEFICIENCY [None]
  - BACK PAIN [None]
  - NERVOUS SYSTEM DISORDER [None]
  - PRESBYOPIA [None]
  - BLOOD CHOLESTEROL INCREASED [None]
  - VAGINAL HAEMORRHAGE [None]
  - LOW TURNOVER OSTEOPATHY [None]
  - PAIN IN EXTREMITY [None]
  - MYOPIA [None]
  - RIB FRACTURE [None]
  - BREAST MASS [None]
  - IMPAIRED HEALING [None]
  - OSTEOPOROSIS [None]
  - FOOT FRACTURE [None]
  - HYPERTENSION [None]
  - OSTEOPENIA [None]
  - ONYCHOMYCOSIS [None]
  - HYPOTHYROIDISM [None]
  - UTERINE DISORDER [None]
  - STRESS FRACTURE [None]
  - ASTIGMATISM [None]
  - MORTON'S NEUROMA [None]
  - TOOTH DISORDER [None]
  - DEVICE FAILURE [None]
  - FEMUR FRACTURE [None]
  - NEUROPATHY PERIPHERAL [None]
  - HYPERLIPIDAEMIA [None]
